FAERS Safety Report 12891603 (Version 1)
Quarter: 2016Q4

REPORT INFORMATION
  Report Type: Spontaneous
  Country: US (occurrence: US)
  Receive Date: 20161028
  Receipt Date: 20161028
  Transmission Date: 20170207
  Serious: No
  Sender: FDA-Public Use
  Company Number: US-LUPIN PHARMACEUTICALS INC.-E2B_00004485

PATIENT
  Age: 37 Year
  Sex: Male
  Weight: 89.44 kg

DRUGS (1)
  1. CEFTRIAXONE FOR INJECTION 250 MG [Suspect]
     Active Substance: CEFTRIAXONE
     Indication: WHITE BLOOD CELL COUNT INCREASED
     Route: 030
     Dates: start: 20151105, end: 20151105

REACTIONS (1)
  - Expired product administered [Unknown]

NARRATIVE: CASE EVENT DATE: 20151105
